FAERS Safety Report 6236448-2 (Version None)
Quarter: 2009Q2

REPORT INFORMATION
  Report Type: 
  Country: None (occurrence: None)
  Receive Date: 20090619
  Receipt Date: 20090610
  Transmission Date: 20091009
  Serious: Yes (Other)
  Sender: FDA-Public Use
  Company Number: NZ-PFIZER INC-2009204930

PATIENT
  Age: 46 Year

DRUGS (2)
  1. ZELDOX [Suspect]
     Indication: BIPOLAR DISORDER
     Dosage: 20 MG, 1X/DAY
     Route: 048
  2. PRIADEL [Concomitant]
     Indication: BIPOLAR DISORDER
     Dosage: 800 MG, 1X/DAY
     Route: 048

REACTIONS (1)
  - MIGRAINE [None]
